FAERS Safety Report 10032535 (Version 1)
Quarter: 2014Q1

REPORT INFORMATION
  Report Type: Spontaneous
  Country: NL (occurrence: NL)
  Receive Date: 20140324
  Receipt Date: 20140324
  Transmission Date: 20141002
  Serious: Yes (Other)
  Sender: FDA-Public Use
  Company Number: NL-BRISTOL-MYERS SQUIBB COMPANY-20561510

PATIENT
  Age: 46 Year
  Sex: Male
  Weight: 90 kg

DRUGS (1)
  1. ABILIFY TABS 10 MG [Suspect]
     Indication: BIPOLAR I DISORDER
     Dosage: DOSE REDUCED FROM 5MG/DAY INTO 2.5MG/DAY
     Dates: start: 20130129

REACTIONS (2)
  - Mania [Recovered/Resolved]
  - Condition aggravated [Recovered/Resolved]
